FAERS Safety Report 7767375-7 (Version None)
Quarter: 2011Q3

REPORT INFORMATION
  Report Type: 
  Country: None (occurrence: None)
  Receive Date: 20110922
  Receipt Date: 20100827
  Transmission Date: 20111222
  Serious: Yes (Other)
  Sender: FDA-Public Use
  Company Number: US-ASTRAZENECA-2008UW01156

PATIENT
  Age: 531 Month
  Sex: Female
  Weight: 72.1 kg

DRUGS (6)
  1. ZYPREXA [Concomitant]
  2. AMBIEN [Concomitant]
  3. SEROQUEL [Suspect]
     Indication: SCHIZOPHRENIA
     Route: 048
     Dates: start: 20031015
  4. LIPITOR [Concomitant]
  5. SEROQUEL [Suspect]
     Route: 048
     Dates: start: 20040301, end: 20051201
  6. AVANDIA [Concomitant]

REACTIONS (7)
  - DIABETES MELLITUS INADEQUATE CONTROL [None]
  - DIABETIC KETOACIDOSIS [None]
  - DRUG HYPERSENSITIVITY [None]
  - BLOOD CHOLESTEROL INCREASED [None]
  - HYPERLIPIDAEMIA [None]
  - DIABETIC COMPLICATION [None]
  - TYPE 2 DIABETES MELLITUS [None]
